FAERS Safety Report 19418570 (Version 2)
Quarter: 2021Q3

REPORT INFORMATION
  Report Type: Spontaneous
  Country: ES (occurrence: ES)
  Receive Date: 20210615
  Receipt Date: 20210901
  Transmission Date: 20211014
  Serious: No
  Sender: FDA-Public Use
  Company Number: ES-PFIZER INC-2021627286

PATIENT
  Age: 56 Year
  Sex: Female

DRUGS (9)
  1. SODIUM STIBOGLUCONATE [Concomitant]
     Active Substance: SODIUM STIBOGLUCONATE
     Dosage: 69000 MG (TOTAL CUMULATIVE DOSE)
  2. INTERFERON GAMMA NOS [Concomitant]
     Active Substance: INTERFERON GAMMA
     Indication: VISCERAL LEISHMANIASIS
     Dosage: UNK
  3. MEGLUMINE ANTIMONATE [Concomitant]
     Active Substance: MEGLUMINE ANTIMONIATE
     Indication: VISCERAL LEISHMANIASIS
     Dosage: UNK
  4. MILTEFOSINE [Concomitant]
     Active Substance: MILTEFOSINE
     Dosage: UNK
  5. ITRACONAZOL [Concomitant]
     Active Substance: ITRACONAZOLE
     Indication: VISCERAL LEISHMANIASIS
     Dosage: UNK
  6. AMPHOTERICIN?B [Concomitant]
     Active Substance: AMPHOTERICIN B
     Indication: VISCERAL LEISHMANIASIS
     Dosage: UNK
  7. SODIUM STIBOGLUCONATE [Concomitant]
     Active Substance: SODIUM STIBOGLUCONATE
     Indication: VISCERAL LEISHMANIASIS
     Dosage: UNK
  8. PAROMOMYCIN SULFATE. [Suspect]
     Active Substance: PAROMOMYCIN SULFATE
     Indication: VISCERAL LEISHMANIASIS
     Dosage: UNK
  9. MILTEFOSINE [Concomitant]
     Active Substance: MILTEFOSINE
     Indication: VISCERAL LEISHMANIASIS
     Dosage: UNK

REACTIONS (1)
  - Off label use [Unknown]
